FAERS Safety Report 10512907 (Version 2)
Quarter: 2014Q4

REPORT INFORMATION
  Report Type: Not Available
  Country: US (occurrence: US)
  Receive Date: 20141013
  Receipt Date: 20141013
  Transmission Date: 20150528
  Serious: No
  Sender: FDA-Public Use
  Company Number: US-LUPIN PHARMACEUTICALS INC.-2014-01688

PATIENT
  Sex: Male
  Weight: 106.69 kg

DRUGS (1)
  1. CEPHALEXIN CAPSULES 500 MG [Suspect]
     Active Substance: CEPHALEXIN
     Indication: PHARYNGITIS STREPTOCOCCAL
     Dates: start: 20140220, end: 20140227

REACTIONS (1)
  - Tendonitis [Not Recovered/Not Resolved]
